FAERS Safety Report 20617128 (Version 1)
Quarter: 2022Q1

REPORT INFORMATION
  Report Type: Spontaneous
  Country: US (occurrence: None)
  Receive Date: 20220319
  Receipt Date: 20220319
  Transmission Date: 20220423
  Serious: Yes (Disabling, Other)
  Sender: FDA-Public Use
  Company Number: None

PATIENT
  Age: 60 Year
  Sex: Female
  Weight: 23.85 kg

DRUGS (1)
  1. EMGALITY [Suspect]
     Active Substance: GALCANEZUMAB-GNLM
     Indication: Migraine prophylaxis
     Dates: start: 20200820, end: 20200920

REACTIONS (2)
  - Arthralgia [None]
  - Loss of personal independence in daily activities [None]
